FAERS Safety Report 6301373-5 (Version None)
Quarter: 2009Q3

REPORT INFORMATION
  Report Type: 
  Country: None (occurrence: None)
  Receive Date: 20090807
  Receipt Date: 20090731
  Transmission Date: 20100115
  Serious: Yes (Other)
  Sender: FDA-Public Use
  Company Number: JP-ASTRAZENECA-2009SE06636

PATIENT
  Age: 54 Year
  Sex: Female

DRUGS (1)
  1. CARBOCAIN [Suspect]
     Indication: NERVE BLOCK
     Dosage: DOSE UNKNOWN, ONCE/SINGLE ADMINISTRATION
     Route: 053
     Dates: start: 20090730, end: 20090730

REACTIONS (1)
  - ANAPHYLACTIC SHOCK [None]
